FAERS Safety Report 16085465 (Version 2)
Quarter: 2019Q1

REPORT INFORMATION
  Report Type: Report from Study
  Country: FR (occurrence: FR)
  Receive Date: 20190318
  Receipt Date: 20190327
  Transmission Date: 20190418
  Serious: Yes (Other)
  Sender: FDA-Public Use
  Company Number: PHHY2019FR059902

PATIENT
  Age: 71 Year
  Sex: Male
  Weight: 100 kg

DRUGS (5)
  1. METHYLPREDNISOLONE. [Suspect]
     Active Substance: METHYLPREDNISOLONE
     Indication: PRODUCT USED FOR UNKNOWN INDICATION
     Dosage: 250 MG, UNK
     Route: 065
     Dates: start: 20181120, end: 20181121
  2. ADOPORT [Suspect]
     Active Substance: TACROLIMUS
     Indication: RENAL TRANSPLANT
     Dosage: 6 MG, UNK
     Route: 048
     Dates: start: 20181120
  3. ADOPORT [Suspect]
     Active Substance: TACROLIMUS
     Dosage: 8 MG, UNK
     Route: 048
     Dates: start: 20181120
  4. ADOPORT [Suspect]
     Active Substance: TACROLIMUS
     Dosage: 4 MG, UNK
     Route: 048
     Dates: start: 20181120
  5. ADOPORT [Suspect]
     Active Substance: TACROLIMUS
     Dosage: 4.5 MG, UNK
     Route: 048
     Dates: start: 20181120

REACTIONS (5)
  - Overdose [Recovered/Resolved]
  - Diabetes mellitus inadequate control [Recovered/Resolved]
  - Anaemia [Recovered/Resolved]
  - Hyperkalaemia [Recovered/Resolved]
  - Hypertension [Recovering/Resolving]

NARRATIVE: CASE EVENT DATE: 20181121
